FAERS Safety Report 12119598 (Version 1)
Quarter: 2016Q1

REPORT INFORMATION
  Report Type: Spontaneous
  Country: US (occurrence: None)
  Receive Date: 20160225
  Receipt Date: 20160225
  Transmission Date: 20160526
  Serious: Yes (Disabling, Other)
  Sender: FDA-Public Use
  Company Number: None

PATIENT
  Age: 95 Year
  Sex: Female
  Weight: 53.52 kg

DRUGS (11)
  1. IRON SUPPLEMENT [Concomitant]
     Active Substance: IRON
  2. OMEPRAZOLE-ER [Concomitant]
  3. VITAMIN B12 [Concomitant]
     Active Substance: CYANOCOBALAMIN
  4. VITAMIN D3 [Concomitant]
     Active Substance: CHOLECALCIFEROL
  5. VITAMIN C [Concomitant]
     Active Substance: ASCORBIC ACID
  6. LASIX [Concomitant]
     Active Substance: FUROSEMIDE
  7. MANUKA HONEY [Concomitant]
  8. MACROBID [Suspect]
     Active Substance: NITROFURANTOIN\NITROFURANTOIN MONOHYDRATE
     Indication: URINARY TRACT INFECTION
     Dosage: 100MG-Q12H TWICE DAILY TAKEN BY MOUTH
     Route: 048
  9. CARDIZEM [Concomitant]
     Active Substance: DILTIAZEM HYDROCHLORIDE
  10. ASPIRIN. [Concomitant]
     Active Substance: ASPIRIN
  11. XANAX [Concomitant]
     Active Substance: ALPRAZOLAM

REACTIONS (5)
  - Back pain [None]
  - Abdominal pain [None]
  - Headache [None]
  - Dizziness [None]
  - Asthenia [None]

NARRATIVE: CASE EVENT DATE: 20160223
